FAERS Safety Report 6149167-8 (Version None)
Quarter: 2009Q2

REPORT INFORMATION
  Report Type: 
  Country: None (occurrence: None)
  Receive Date: 20090409
  Receipt Date: 20090407
  Transmission Date: 20091009
  Serious: Yes (Death)
  Sender: FDA-Public Use
  Company Number: US-BRISTOL-MYERS SQUIBB COMPANY-14578330

PATIENT
  Age: 5 Decade
  Sex: Female

DRUGS (1)
  1. ABILIFY [Suspect]
     Indication: DEMENTIA
     Dates: start: 20060101

REACTIONS (2)
  - BLOOD GLUCOSE INCREASED [None]
  - CEREBROVASCULAR ACCIDENT [None]
